FAERS Safety Report 21405702 (Version 1)
Quarter: 2022Q4

REPORT INFORMATION
  Report Type: Spontaneous
  Country: US (occurrence: US)
  Receive Date: 20221004
  Receipt Date: 20221004
  Transmission Date: 20230113
  Serious: No
  Sender: FDA-Public Use
  Company Number: US-TEVA-2022-US-2075138

PATIENT
  Age: 86 Year
  Sex: Female
  Weight: 63 kg

DRUGS (2)
  1. AUSTEDO [Suspect]
     Active Substance: DEUTETRABENAZINE
     Indication: Huntington^s disease
     Dosage: 42 MILLIGRAM DAILY; (9 MG + 12 MG)
     Route: 065
     Dates: start: 202107
  2. AUSTEDO [Suspect]
     Active Substance: DEUTETRABENAZINE
     Dosage: 48 MILLIGRAM DAILY;
     Route: 065
     Dates: start: 20220808

REACTIONS (5)
  - Muscle rigidity [Recovered/Resolved]
  - Bradykinesia [Recovered/Resolved]
  - Somnolence [Recovered/Resolved]
  - Communication disorder [Recovered/Resolved]
  - Drooling [Recovered/Resolved]

NARRATIVE: CASE EVENT DATE: 20220101
